FAERS Safety Report 15429466 (Version 1)
Quarter: 2018Q3

REPORT INFORMATION
  Report Type: Spontaneous
  Country: US (occurrence: US)
  Receive Date: 20180926
  Receipt Date: 20180926
  Transmission Date: 20181010
  Serious: Yes (Hospitalization)
  Sender: FDA-Public Use
  Company Number: US-PFIZER INC-2018384944

PATIENT
  Age: 71 Year
  Sex: Male

DRUGS (1)
  1. CADUET [Suspect]
     Active Substance: AMLODIPINE BESYLATE\ATORVASTATIN CALCIUM
     Dosage: UNK

REACTIONS (7)
  - Peripheral artery aneurysm [Unknown]
  - Abdominal discomfort [Unknown]
  - Intestinal obstruction [Unknown]
  - Hernia [Unknown]
  - Drug dispensing error [Unknown]
  - Impaired work ability [Unknown]
  - Limb discomfort [Unknown]
